FAERS Safety Report 5126710-9 (Version None)
Quarter: 2006Q4

REPORT INFORMATION
  Report Type: 
  Country: None (occurrence: None)
  Receive Date: 20061013
  Receipt Date: 20060912
  Transmission Date: 20070319
  Serious: Yes (Hospitalization)
  Sender: FDA-Public Use
  Company Number: 2006UW18018

PATIENT
  Age: 15961 Day
  Sex: Male
  Weight: 96.4 kg

DRUGS (8)
  1. SEROQUEL [Suspect]
     Indication: BIPOLAR I DISORDER
     Route: 048
     Dates: start: 20060707, end: 20060911
  2. SEROQUEL [Suspect]
     Route: 048
     Dates: start: 20060707, end: 20060911
  3. LITHIUM CARBONATE [Suspect]
     Indication: BIPOLAR I DISORDER
     Route: 048
     Dates: start: 20060629, end: 20060911
  4. ALCOHOL [Suspect]
  5. DYNACIRC [Concomitant]
     Indication: HYPERTENSION
     Route: 048
     Dates: start: 20050101
  6. BENICAR [Concomitant]
     Indication: HYPERTENSION
     Route: 048
     Dates: start: 20050101
  7. TYLENOL ES [Concomitant]
     Indication: HEADACHE
     Dosage: 3 TABLETS
     Route: 048
     Dates: start: 20060101
  8. MULTIVITAMIN [Concomitant]
     Indication: MEDICAL DIET
     Dosage: 1 TABLET DAILY
     Route: 048
     Dates: start: 20060101

REACTIONS (2)
  - ALCOHOL USE [None]
  - SUICIDAL IDEATION [None]
